FAERS Safety Report 21376611 (Version 2)
Quarter: 2022Q4

REPORT INFORMATION
  Report Type: Spontaneous
  Country: RU (occurrence: RU)
  Receive Date: 20220926
  Receipt Date: 20221001
  Transmission Date: 20230112
  Serious: Yes (Hospitalization, Other)
  Sender: FDA-Public Use
  Company Number: RU-ABBVIE-4129869

PATIENT
  Age: 2 Year
  Sex: Male

DRUGS (1)
  1. SEVOFLURANE [Suspect]
     Active Substance: SEVOFLURANE
     Indication: Dental care
     Route: 055
     Dates: start: 20190306

REACTIONS (8)
  - Cardiac failure acute [Recovered/Resolved with Sequelae]
  - Post procedural complication [Recovered/Resolved with Sequelae]
  - Circulatory collapse [Recovered/Resolved with Sequelae]
  - Brain injury [Unknown]
  - Product selection error [Recovered/Resolved with Sequelae]
  - Incorrect drug administration rate [Recovered/Resolved with Sequelae]
  - Wrong technique in device usage process [Recovered/Resolved with Sequelae]
  - General physical health deterioration [Unknown]

NARRATIVE: CASE EVENT DATE: 20190101
